FAERS Safety Report 10129670 (Version 1)
Quarter: 2014Q2

REPORT INFORMATION
  Report Type: Spontaneous
  Country: CA (occurrence: None)
  Receive Date: 20140424
  Receipt Date: 20140424
  Transmission Date: 20141212
  Serious: Yes (Hospitalization)
  Sender: FDA-Public Use
  Company Number: CA-015378

PATIENT
  Age: 58 Year
  Sex: Male

DRUGS (1)
  1. DEGARELIX (FIRMAGON) 80MG [Suspect]
     Indication: PRODUCT USED FOR UNKNOWN INDICATION
     Dosage: 1X/MONTH SUBCUTANEOUS)
     Route: 058
     Dates: start: 20130702, end: 20140410

REACTIONS (1)
  - Dysuria [None]
